FAERS Safety Report 15794889 (Version 2)
Quarter: 2019Q1

REPORT INFORMATION
  Report Type: Report from Study
  Country: US (occurrence: US)
  Receive Date: 20190107
  Receipt Date: 20190124
  Transmission Date: 20190417
  Serious: Yes (Hospitalization, Other)
  Sender: FDA-Public Use
  Company Number: US-GILEAD-2019-0383246

PATIENT
  Age: 74 Year
  Sex: Female

DRUGS (26)
  1. MOTRIN [Concomitant]
     Active Substance: IBUPROFEN
  2. PROTONIX [OMEPRAZOLE] [Concomitant]
  3. VISINE A [Concomitant]
     Active Substance: NAPHAZOLINE HYDROCHLORIDE\PHENIRAMINE MALEATE
  4. LIPITOR [Concomitant]
     Active Substance: ATORVASTATIN CALCIUM
  5. ZITHROMAX [Concomitant]
     Active Substance: AZITHROMYCIN DIHYDRATE
  6. DELTASONE N [Concomitant]
  7. PEPTO-BISMOL [Concomitant]
     Active Substance: BISMUTH SUBSALICYLATE
  8. DEMADEX [TORASEMIDE] [Concomitant]
  9. XARELTO [Concomitant]
     Active Substance: RIVAROXABAN
  10. AMBRISENTAN [Suspect]
     Active Substance: AMBRISENTAN
     Indication: SCLERODERMA
  11. TYLENOL [Concomitant]
     Active Substance: ACETAMINOPHEN
  12. SPIRIVA [Concomitant]
     Active Substance: TIOTROPIUM BROMIDE MONOHYDRATE
  13. NEURONTIN [Concomitant]
     Active Substance: GABAPENTIN
  14. BIOTIN [Concomitant]
     Active Substance: BIOTIN
  15. TUMS [Concomitant]
     Active Substance: CALCIUM CARBONATE
  16. MUCINEX [Concomitant]
     Active Substance: GUAIFENESIN
  17. VOLTAREN [DICLOFENAC] [Concomitant]
     Active Substance: DICLOFENAC SODIUM
  18. SYNTHROID [Concomitant]
     Active Substance: LEVOTHYROXINE SODIUM
  19. AUGMENTIN [Concomitant]
     Active Substance: AMOXICILLIN\CLAVULANATE POTASSIUM
  20. AMBRISENTAN [Suspect]
     Active Substance: AMBRISENTAN
     Indication: PULMONARY HYPERTENSION
     Dosage: 10 MG, QD
     Route: 048
     Dates: start: 20170801
  21. ADCIRCA [Concomitant]
     Active Substance: TADALAFIL
  22. KLOR-CON [Concomitant]
     Active Substance: POTASSIUM CHLORIDE
  23. SLOW-MAG [Concomitant]
     Active Substance: MAGNESIUM CHLORIDE
  24. ALBUTEROL HFA [Concomitant]
     Active Substance: ALBUTEROL SULFATE
  25. CARTIA XT [Concomitant]
     Active Substance: DILTIAZEM HYDROCHLORIDE
  26. VITAMIN B12 [Concomitant]
     Active Substance: CYANOCOBALAMIN

REACTIONS (1)
  - Pneumonia [Recovered/Resolved]

NARRATIVE: CASE EVENT DATE: 20190103
